FAERS Safety Report 6092686-3 (Version None)
Quarter: 2009Q1

REPORT INFORMATION
  Report Type: 
  Country: None (occurrence: None)
  Receive Date: 20090225
  Receipt Date: 20090204
  Transmission Date: 20090719
  Serious: Yes (Other)
  Sender: FDA-Public Use
  Company Number: GB-ABBOTT-08P-167-0487475-00

PATIENT
  Sex: Female

DRUGS (4)
  1. ERYTHROMYCIN [Suspect]
     Indication: LUNG INFECTION
     Route: 048
     Dates: start: 20081014, end: 20081021
  2. LOSEC [Concomitant]
     Indication: DRUG USE FOR UNKNOWN INDICATION
  3. UNKNOWN [Concomitant]
     Indication: BLOOD PRESSURE
  4. UNKNOWN [Concomitant]
     Indication: VERTIGO

REACTIONS (7)
  - CONDITION AGGRAVATED [None]
  - HERPES ZOSTER [None]
  - HYPERSENSITIVITY [None]
  - PAIN [None]
  - RASH [None]
  - RASH PAPULAR [None]
  - SKIN EXFOLIATION [None]
